FAERS Safety Report 13839430 (Version 1)
Quarter: 2017Q3

REPORT INFORMATION
  Report Type: Spontaneous
  Country: US (occurrence: US)
  Receive Date: 20170805
  Receipt Date: 20170805
  Transmission Date: 20171127
  Serious: No
  Sender: FDA-Public Use
  Company Number: None

PATIENT
  Age: 28 Year
  Sex: Female

DRUGS (4)
  1. FENTANYL. [Suspect]
     Active Substance: FENTANYL
     Route: 042
  2. MULTIVITAMIN [Concomitant]
     Active Substance: VITAMINS
  3. MORPHINE [Suspect]
     Active Substance: MORPHINE
     Indication: SURGERY
     Route: 008
     Dates: start: 20170315, end: 20170315
  4. VALACYCLOVIR [Concomitant]
     Active Substance: VALACYCLOVIR HYDROCHLORIDE

REACTIONS (2)
  - Nausea [None]
  - Lethargy [None]

NARRATIVE: CASE EVENT DATE: 20170313
